FAERS Safety Report 16777324 (Version 1)
Quarter: 2019Q3

REPORT INFORMATION
  Report Type: Spontaneous
  Country: DK (occurrence: DK)
  Receive Date: 20190905
  Receipt Date: 20190905
  Transmission Date: 20191005
  Serious: Yes (Other)
  Sender: FDA-Public Use
  Company Number: PHHY2019DK205127

PATIENT
  Age: 70 Year
  Sex: Female

DRUGS (4)
  1. BISOPROLOL STADA [Concomitant]
     Indication: CARDIAC DISORDER
     Dosage: 10 MG, QD
     Route: 048
     Dates: start: 201611
  2. LOSARTAN. [Concomitant]
     Active Substance: LOSARTAN
     Indication: CARDIAC DISORDER
     Dosage: STYRKE: 50MG DOSIS: 1 TABL MORGEN OG 2 TABL AFTEN
     Route: 048
  3. ACLASTA [Suspect]
     Active Substance: ZOLEDRONIC ACID
     Indication: OSTEOPOROSIS
     Dosage: 5 MG, UNK STYRKE: 5MG/100ML
     Route: 042
     Dates: start: 201811, end: 20190815
  4. HEXALID [Concomitant]
     Indication: SEDATION
     Dosage: 4 MG, QD
     Route: 048
     Dates: start: 20121129

REACTIONS (2)
  - Iridocyclitis [Not Recovered/Not Resolved]
  - Vision blurred [Not Recovered/Not Resolved]

NARRATIVE: CASE EVENT DATE: 20190817
